FAERS Safety Report 8565154-4 (Version None)
Quarter: 2012Q3

REPORT INFORMATION
  Report Type: 
  Country: None (occurrence: None)
  Receive Date: 20120803
  Receipt Date: 20120730
  Transmission Date: 20120928
  Serious: No
  Sender: FDA-Public Use
  Company Number: US-PFIZER INC-2012112154

PATIENT
  Sex: Male
  Weight: 71.202 kg

DRUGS (3)
  1. CHANTIX [Suspect]
     Indication: SMOKING CESSATION THERAPY
     Dosage: UNK
     Route: 048
     Dates: start: 20120426, end: 20120429
  2. CHANTIX [Suspect]
     Dosage: 0.5 MG, DAILY
     Route: 048
     Dates: start: 20120506
  3. PROAIR HFA [Concomitant]
     Indication: ASTHMA
     Dosage: 1-2 PUFFS AS NEEDED

REACTIONS (3)
  - CHEST DISCOMFORT [None]
  - BACK PAIN [None]
  - CHEST PAIN [None]
